FAERS Safety Report 15959918 (Version 3)
Quarter: 2019Q4

REPORT INFORMATION
  Report Type: Spontaneous
  Country: DE (occurrence: DE)
  Receive Date: 20190214
  Receipt Date: 20191218
  Transmission Date: 20200122
  Serious: Yes (Other)
  Sender: FDA-Public Use
  Company Number: DE-SA-2019SA038072

PATIENT
  Age: 33 Year
  Sex: Male
  Weight: 98 kg

DRUGS (4)
  1. DUPIXENT [Suspect]
     Active Substance: DUPILUMAB
     Indication: DERMATITIS ATOPIC
     Dosage: 300 MG, QOW
     Route: 058
     Dates: start: 20180718, end: 20181227
  2. DUPIXENT [Suspect]
     Active Substance: DUPILUMAB
     Dosage: 300 MG, QOW
     Route: 058
     Dates: start: 20190131
  3. PREDNISOLONE. [Concomitant]
     Active Substance: PREDNISOLONE
  4. CICLOSPORIN [Concomitant]
     Active Substance: CYCLOSPORINE

REACTIONS (5)
  - Blepharitis [Not Recovered/Not Resolved]
  - Diplopia [Unknown]
  - Conjunctivitis [Recovering/Resolving]
  - Visual impairment [Not Recovered/Not Resolved]
  - Heterophoria [Unknown]

NARRATIVE: CASE EVENT DATE: 20181023
